FAERS Safety Report 19366878 (Version 1)
Quarter: 2021Q2

REPORT INFORMATION
  Report Type: Spontaneous
  Country: DE (occurrence: DE)
  Receive Date: 20210603
  Receipt Date: 20210603
  Transmission Date: 20210717
  Serious: Yes (Death, Other)
  Sender: FDA-Public Use
  Company Number: DE-SA-2021SA180188

PATIENT
  Sex: Male

DRUGS (26)
  1. LINEZOLID. [Suspect]
     Active Substance: LINEZOLID
     Indication: TUBERCULOSIS
     Dosage: UNK
  2. PYRAZINAMIDE. [Suspect]
     Active Substance: PYRAZINAMIDE
  3. ISONIAZID. [Suspect]
     Active Substance: ISONIAZID
     Indication: PULMONARY TUBERCULOSIS
     Dosage: UNK
  4. ETHAMBUTOL [Suspect]
     Active Substance: ETHAMBUTOL HYDROCHLORIDE
     Indication: TUBERCULOSIS
  5. CAPREOMYCIN [Suspect]
     Active Substance: CAPREOMYCIN
     Indication: TUBERCULOSIS
     Dosage: UNK
  6. STREPTOMYCIN [Suspect]
     Active Substance: STREPTOMYCIN SULFATE
     Indication: TUBERCULOSIS
  7. PROTHIONAMIDE [Suspect]
     Active Substance: PROTIONAMIDE
  8. KANAMYCIN [Suspect]
     Active Substance: KANAMYCIN A SULFATE
     Indication: TUBERCULOSIS
  9. CLARITHROMYCIN. [Suspect]
     Active Substance: CLARITHROMYCIN
     Indication: TUBERCULOSIS
     Dosage: UNK
  10. AMIKACIN. [Suspect]
     Active Substance: AMIKACIN
     Dosage: UNK
  11. PARA?AMINOSALICYLIC ACID [Suspect]
     Active Substance: AMINOSALICYLIC ACID
     Indication: PULMONARY TUBERCULOSIS
     Dosage: UNK
  12. AMIKACIN. [Suspect]
     Active Substance: AMIKACIN
     Indication: TUBERCULOSIS
     Dosage: UNK
  13. PYRAZINAMIDE. [Suspect]
     Active Substance: PYRAZINAMIDE
     Indication: TUBERCULOSIS
  14. PARA?AMINOSALICYLIC ACID [Suspect]
     Active Substance: AMINOSALICYLIC ACID
     Indication: TUBERCULOSIS
     Dosage: UNK
  15. PROTHIONAMIDE [Suspect]
     Active Substance: PROTIONAMIDE
  16. PROTHIONAMIDE [Suspect]
     Active Substance: PROTIONAMIDE
  17. ETHAMBUTOL [Suspect]
     Active Substance: ETHAMBUTOL HYDROCHLORIDE
  18. ISONIAZID. [Suspect]
     Active Substance: ISONIAZID
     Dosage: UNK
  19. AMOXICILLIN/CLAVULANIC ACID [Suspect]
     Active Substance: AMOXICILLIN\CLAVULANIC ACID
     Indication: PULMONARY TUBERCULOSIS
  20. OFLOXACIN. [Suspect]
     Active Substance: OFLOXACIN
     Indication: TUBERCULOSIS
     Dosage: UNK
  21. AMOXICILLIN/CLAVULANIC ACID [Suspect]
     Active Substance: AMOXICILLIN\CLAVULANIC ACID
  22. RIFAMPICIN [Suspect]
     Active Substance: RIFAMPIN
     Indication: TUBERCULOSIS
  23. TERIZIDONE [Suspect]
     Active Substance: TERIZIDONE
     Indication: TUBERCULOSIS
  24. PYRAZINAMIDE. [Suspect]
     Active Substance: PYRAZINAMIDE
  25. PROTHIONAMIDE [Suspect]
     Active Substance: PROTIONAMIDE
     Indication: TUBERCULOSIS
  26. PROTHIONAMIDE [Suspect]
     Active Substance: PROTIONAMIDE

REACTIONS (7)
  - Treatment noncompliance [Fatal]
  - Disease recurrence [Fatal]
  - Inappropriate schedule of product administration [Fatal]
  - Tuberculosis [Fatal]
  - Treatment failure [Fatal]
  - Multiple-drug resistance [Fatal]
  - Pathogen resistance [Fatal]
